FAERS Safety Report 19397008 (Version 2)
Quarter: 2021Q2

REPORT INFORMATION
  Report Type: Report from Study
  Country: US (occurrence: US)
  Receive Date: 20210609
  Receipt Date: 20210615
  Transmission Date: 20210717
  Serious: Yes (Hospitalization)
  Sender: FDA-Public Use
  Company Number: US-JNJFOC-20210610807

PATIENT
  Age: 65 Year
  Sex: Female
  Weight: 64.5 kg

DRUGS (2)
  1. LAZERTINIB. [Suspect]
     Active Substance: LAZERTINIB
     Indication: NON-SMALL CELL LUNG CANCER
     Route: 048
     Dates: start: 20210526, end: 20210531
  2. AMIVANTAMAB. [Suspect]
     Active Substance: AMIVANTAMAB
     Indication: NON-SMALL CELL LUNG CANCER
     Route: 042
     Dates: start: 20210526, end: 20210527

REACTIONS (2)
  - Hyponatraemia [Recovered/Resolved]
  - Muscle spasms [Not Recovered/Not Resolved]

NARRATIVE: CASE EVENT DATE: 20210602
